FAERS Safety Report 13240394 (Version 1)
Quarter: 2017Q1

REPORT INFORMATION
  Report Type: Spontaneous
  Country: US (occurrence: US)
  Receive Date: 20170216
  Receipt Date: 20170216
  Transmission Date: 20170428
  Serious: No
  Sender: FDA-Public Use
  Company Number: US-RELYPSA-RLY2016003321

PATIENT
  Sex: Male

DRUGS (5)
  1. BENAZEPRIL [Concomitant]
     Active Substance: BENAZEPRIL HYDROCHLORIDE
  2. KIONEX [Concomitant]
     Active Substance: SODIUM POLYSTYRENE SULFONATE
  3. FINASTERIDE. [Concomitant]
     Active Substance: FINASTERIDE
  4. VELTASSA [Suspect]
     Active Substance: PATIROMER
     Indication: HYPERKALAEMIA
     Dosage: 8.4 G, QD
     Route: 048
     Dates: end: 2016
  5. CALCITRIOL. [Concomitant]
     Active Substance: CALCITRIOL

REACTIONS (3)
  - Abdominal pain upper [Unknown]
  - Diarrhoea [Unknown]
  - Nausea [Unknown]

NARRATIVE: CASE EVENT DATE: 2016
